FAERS Safety Report 4753347-3 (Version None)
Quarter: 2005Q3

REPORT INFORMATION
  Report Type: 
  Country: None (occurrence: None)
  Receive Date: 20050826
  Receipt Date: 20050817
  Transmission Date: 20060218
  Serious: Yes (Hospitalization, Other)
  Sender: FDA-Public Use
  Company Number: US-JNJFOC-20050606160

PATIENT
  Sex: Female
  Weight: 65.32 kg

DRUGS (8)
  1. REMICADE [Suspect]
     Route: 042
  2. REMICADE [Suspect]
     Indication: RHEUMATOID ARTHRITIS
     Dosage: 300-400 MG EVERY 6-8 WEEKS
     Route: 042
  3. METHOTREXATE [Concomitant]
     Indication: RHEUMATOID ARTHRITIS
  4. SULFASALAZINE [Concomitant]
     Indication: RHEUMATOID ARTHRITIS
  5. GOLD COMPOUNDS [Concomitant]
  6. PREDNISONE TAB [Concomitant]
     Indication: RHEUMATOID ARTHRITIS
  7. FOSAMAX [Concomitant]
     Indication: OSTEOPOROSIS
  8. ATENOLOL [Concomitant]
     Indication: HYPERTENSION

REACTIONS (2)
  - ARTERIAL OCCLUSIVE DISEASE [None]
  - RENAL ARTERY STENOSIS [None]
